FAERS Safety Report 11913005 (Version 3)
Quarter: 2016Q1

REPORT INFORMATION
  Report Type: Spontaneous
  Country: US (occurrence: US)
  Receive Date: 20160113
  Receipt Date: 20160223
  Transmission Date: 20160526
  Serious: No
  Sender: FDA-Public Use
  Company Number: US-009507513-1601USA001906

PATIENT
  Age: 18 Year
  Sex: Female
  Weight: 45.35 kg

DRUGS (2)
  1. NEXPLANON [Suspect]
     Active Substance: ETONOGESTREL
     Indication: CONTRACEPTION
     Dosage: 68 MG EVERY 3 YEARS
     Route: 059
     Dates: start: 20151120, end: 20151229
  2. NEXPLANON [Suspect]
     Active Substance: ETONOGESTREL
     Dosage: 68 MG EVERY 3 YEARS
     Route: 059
     Dates: start: 20151229

REACTIONS (3)
  - Implant site pain [Recovered/Resolved]
  - Device difficult to use [Recovered/Resolved]
  - Product quality issue [Unknown]

NARRATIVE: CASE EVENT DATE: 20151120
